FAERS Safety Report 10104610 (Version 1)
Quarter: 2014Q2

REPORT INFORMATION
  Report Type: Report from Study
  Country: US (occurrence: US)
  Receive Date: 20140424
  Receipt Date: 20140424
  Transmission Date: 20141212
  Serious: Yes (Hospitalization, Other)
  Sender: FDA-Public Use
  Company Number: US-ABBVIE-14P-163-1226708-00

PATIENT
  Sex: Male

DRUGS (5)
  1. HUMIRA [Suspect]
     Indication: CROHN^S DISEASE
     Dates: start: 2009
  2. LUNESTA [Concomitant]
     Indication: INSOMNIA
     Dosage: AT BEDTIME
  3. LUNESTA [Concomitant]
     Indication: INSOMNIA
  4. AMBIEN [Concomitant]
     Indication: INSOMNIA
  5. AMBIEN [Concomitant]
     Indication: INSOMNIA

REACTIONS (11)
  - Portal vein thrombosis [Recovering/Resolving]
  - Splenic vein thrombosis [Recovering/Resolving]
  - Mesenteric vein thrombosis [Recovering/Resolving]
  - Abdominal pain [Recovering/Resolving]
  - Abdominal distension [Recovering/Resolving]
  - Arterial injury [Recovering/Resolving]
  - Arterial haemorrhage [Recovering/Resolving]
  - Depression [Unknown]
  - Diarrhoea [Not Recovered/Not Resolved]
  - Laboratory test abnormal [Not Recovered/Not Resolved]
  - Weight decreased [Not Recovered/Not Resolved]
